FAERS Safety Report 14588005 (Version 1)
Quarter: 2018Q1

REPORT INFORMATION
  Report Type: Spontaneous
  Country: DE (occurrence: DE)
  Receive Date: 20180301
  Receipt Date: 20180301
  Transmission Date: 20180509
  Serious: Yes (Other)
  Sender: FDA-Public Use
  Company Number: DE-BAYER-2018-021204

PATIENT
  Sex: Female
  Weight: 63 kg

DRUGS (2)
  1. GADOVIST [Suspect]
     Active Substance: GADOBUTROL
     Indication: ACOUSTIC NEUROMA
     Dosage: 6 ML, ONCE
     Route: 042
     Dates: start: 20180131, end: 20180131
  2. GADOVIST [Suspect]
     Active Substance: GADOBUTROL
     Indication: ACOUSTIC NEUROMA
     Dosage: 6 ML, UNK

REACTIONS (6)
  - Asthenia [Recovered/Resolved]
  - Contrast media reaction [Recovered/Resolved]
  - Nausea [Recovered/Resolved]
  - Presyncope [Recovered/Resolved]
  - Vomiting [Recovered/Resolved]
  - Cardiovascular disorder [Recovered/Resolved]

NARRATIVE: CASE EVENT DATE: 20180131
